FAERS Safety Report 4882476-9 (Version None)
Quarter: 2006Q1

REPORT INFORMATION
  Report Type: 
  Country: None (occurrence: None)
  Receive Date: 20060113
  Receipt Date: 20060104
  Transmission Date: 20060701
  Serious: Yes (Hospitalization, Other)
  Sender: FDA-Public Use
  Company Number: 2006003944

PATIENT
  Age: 73 Year
  Sex: Female
  Weight: 62.5964 kg

DRUGS (9)
  1. TIKOSYN [Suspect]
     Indication: ATRIAL FIBRILLATION
     Dosage: 500 MCG (250 MCG, 2 IN 1 D)
  2. PROTONIX [Concomitant]
  3. ASPIRIN [Concomitant]
  4. PREMARIN [Concomitant]
  5. ZANTAC [Concomitant]
  6. IRON (IRON) [Concomitant]
  7. AMBIEN [Concomitant]
  8. METOPROLOL (METOPROLOL) [Concomitant]
  9. RELAFEN [Concomitant]

REACTIONS (4)
  - CEREBROVASCULAR ACCIDENT [None]
  - DEHYDRATION [None]
  - DEPRESSION [None]
  - VIRAL INFECTION [None]
